FAERS Safety Report 6496349-1 (Version None)
Quarter: 2009Q4

REPORT INFORMATION
  Report Type: 
  Country: None (occurrence: None)
  Receive Date: 20091214
  Receipt Date: 20090803
  Transmission Date: 20100525
  Serious: No
  Sender: FDA-Public Use
  Company Number: US-ABBOTT-09P-163-0583177-00

PATIENT
  Sex: Male
  Weight: 74.91 kg

DRUGS (1)
  1. VICODIN ES [Suspect]
     Indication: PAIN MANAGEMENT

REACTIONS (1)
  - DRUG INEFFECTIVE [None]
